FAERS Safety Report 4780570-4 (Version None)
Quarter: 2005Q3

REPORT INFORMATION
  Report Type: 
  Country: None (occurrence: None)
  Receive Date: 20050914
  Receipt Date: 20050430
  Transmission Date: 20060218
  Serious: Yes (Death, Hospitalization)
  Sender: FDA-Public Use
  Company Number: 163-20785-05050047

PATIENT
  Age: 52 Year
  Sex: Female

DRUGS (17)
  1. THALOMID [Suspect]
     Indication: MULTIPLE MYELOMA
     Dosage: QD, ORAL; 50 MG, QD, ORAL
     Route: 048
     Dates: start: 20040401, end: 20041101
  2. THALOMID [Suspect]
     Indication: MULTIPLE MYELOMA
     Dosage: QD, ORAL; 50 MG, QD, ORAL
     Route: 048
     Dates: start: 20041116, end: 20041220
  3. DEXAMETHASONE [Suspect]
     Indication: MULTIPLE MYELOMA
     Dosage: QD, ORAL; 20 MG, QD, ORAL
     Route: 048
     Dates: start: 20040401, end: 20041101
  4. DEXAMETHASONE [Suspect]
     Indication: MULTIPLE MYELOMA
     Dosage: QD, ORAL; 20 MG, QD, ORAL
     Route: 048
     Dates: start: 20041116, end: 20041119
  5. VELCADE [Suspect]
     Indication: MULTIPLE MYELOMA
     Dates: start: 20040401
  6. CISPLATIN [Suspect]
     Indication: MULTIPLE MYELOMA
     Dates: start: 20040401
  7. DOXORUBICIN HCL [Suspect]
     Indication: MULTIPLE MYELOMA
     Dates: start: 20040401
  8. CYCLOPHOSPHAMIDE [Suspect]
     Indication: MULTIPLE MYELOMA
     Dates: start: 20040401
  9. MELPHALAN (MELPHALAN) [Suspect]
     Indication: MULTIPLE MYELOMA
     Dosage: 200 MG/M2
     Dates: start: 20040101
  10. MELPHALAN (MELPHALAN) [Suspect]
     Indication: MULTIPLE MYELOMA
     Dosage: 200 MG/M2
     Dates: start: 20041001
  11. ETOPOSIDE [Suspect]
     Indication: MULTIPLE MYELOMA
     Dates: start: 20040401
  12. ACYCLOVIR [Concomitant]
  13. PROTONIX [Concomitant]
  14. COUMADIN [Concomitant]
  15. DIGOXIN [Concomitant]
  16. CELEXA [Concomitant]
  17. OXYCODONE [Concomitant]

REACTIONS (17)
  - ASTHENIA [None]
  - BACTERAEMIA [None]
  - COLITIS [None]
  - DEPRESSION [None]
  - DISEASE PROGRESSION [None]
  - FALL [None]
  - FEBRILE NEUTROPENIA [None]
  - GRAND MAL CONVULSION [None]
  - HYPERTENSION [None]
  - LOSS OF CONSCIOUSNESS [None]
  - MUCOSAL INFLAMMATION [None]
  - NAUSEA [None]
  - PNEUMONIA [None]
  - RENAL FAILURE [None]
  - STAPHYLOCOCCAL INFECTION [None]
  - SUPRAVENTRICULAR TACHYCARDIA [None]
  - VOMITING [None]
